FAERS Safety Report 17739639 (Version 1)
Quarter: 2020Q2

REPORT INFORMATION
  Report Type: Spontaneous
  Country: US (occurrence: US)
  Receive Date: 20200501
  Receipt Date: 20200501
  Transmission Date: 20200714
  Serious: No
  Sender: FDA-Public Use
  Company Number: None

PATIENT
  Age: 36 Year
  Sex: Female

DRUGS (1)
  1. BOTOX [Suspect]
     Active Substance: ONABOTULINUMTOXINA
     Indication: SOMATIC SYMPTOM DISORDER
     Dosage: ?          OTHER FREQUENCY:EVERY 90 DAYS;OTHER ROUTE:IM?
     Route: 030
     Dates: start: 202002

REACTIONS (3)
  - Therapy non-responder [None]
  - Jaw disorder [None]
  - Facial paralysis [None]

NARRATIVE: CASE EVENT DATE: 202002
